FAERS Safety Report 15607909 (Version 2)
Quarter: 2018Q4

REPORT INFORMATION
  Report Type: Spontaneous
  Country: US (occurrence: US)
  Receive Date: 20181112
  Receipt Date: 20181204
  Transmission Date: 20190205
  Serious: No
  Sender: FDA-Public Use
  Company Number: US-PFIZER INC-2018451941

PATIENT

DRUGS (1)
  1. QUELICIN [Suspect]
     Active Substance: SUCCINYLCHOLINE CHLORIDE
     Dosage: UNK

REACTIONS (2)
  - Product measured potency issue [Unknown]
  - Drug ineffective [Unknown]
